FAERS Safety Report 21857816 (Version 1)
Quarter: 2023Q1

REPORT INFORMATION
  Report Type: Spontaneous
  Country: US (occurrence: US)
  Receive Date: 20230113
  Receipt Date: 20230113
  Transmission Date: 20230417
  Serious: Yes (Death)
  Sender: FDA-Public Use
  Company Number: US-JNJFOC-20230119134

PATIENT
  Age: 8 Year
  Sex: Female

DRUGS (1)
  1. CHILDRENS TYLENOL [Suspect]
     Active Substance: ACETAMINOPHEN
     Indication: Pain
     Dosage: SHE WAS GIVEN CHILDREN^S LIQUID TYLENOL FOR PAIN AS NEEDED
     Route: 065

REACTIONS (1)
  - Death [Fatal]
